FAERS Safety Report 22141611 (Version 1)
Quarter: 2023Q1

REPORT INFORMATION
  Report Type: Spontaneous
  Country: US (occurrence: US)
  Receive Date: 20230327
  Receipt Date: 20230327
  Transmission Date: 20230417
  Serious: No
  Sender: FDA-Public Use
  Company Number: US-PFIZER INC-202300126687

PATIENT
  Age: 66 Year
  Sex: Female
  Weight: 56.7 kg

DRUGS (1)
  1. PAXLOVID [Suspect]
     Active Substance: NIRMATRELVIR\RITONAVIR
     Indication: COVID-19 treatment
     Dosage: [PF-07321332 300 MG]/[RITONAVIR 100 MG]; 2X/DAY
     Route: 048
     Dates: start: 20230318

REACTIONS (5)
  - Hypertension [Not Recovered/Not Resolved]
  - Diarrhoea [Recovered/Resolved]
  - Anxiety [Unknown]
  - Feeling abnormal [Unknown]
  - Chest discomfort [Unknown]

NARRATIVE: CASE EVENT DATE: 20230320
